FAERS Safety Report 13379467 (Version 2)
Quarter: 2017Q3

REPORT INFORMATION
  Report Type: Report from Study
  Country: US (occurrence: US)
  Receive Date: 20170328
  Receipt Date: 20170928
  Transmission Date: 20171127
  Serious: Yes (Death)
  Sender: FDA-Public Use
  Company Number: US-US WORLDMEDS, LLC-USW201703-000411

PATIENT
  Age: 72 Year
  Sex: Male

DRUGS (1)
  1. APOKYN [Suspect]
     Active Substance: APOMORPHINE HYDROCHLORIDE
     Indication: PARKINSON^S DISEASE
     Dates: start: 201601, end: 201607

REACTIONS (1)
  - Death [Fatal]

NARRATIVE: CASE EVENT DATE: 201703
